FAERS Safety Report 15753394 (Version 2)
Quarter: 2021Q4

REPORT INFORMATION
  Report Type: Spontaneous
  Country: US (occurrence: US)
  Receive Date: 20181222
  Receipt Date: 20211215
  Transmission Date: 20220303
  Serious: No
  Sender: FDA-Public Use
  Company Number: US-MALLINCKRODT-T201800845

PATIENT
  Sex: Male

DRUGS (3)
  1. FENTANYL TRANSDERMAL SYSTEM [Suspect]
     Active Substance: FENTANYL
     Indication: Pain
     Dosage: 100 MCG/HR EVERY 72 HOURS
     Route: 062
     Dates: start: 2002
  2. FENTANYL TRANSDERMAL SYSTEM [Suspect]
     Active Substance: FENTANYL
     Dosage: 100 MCG/HR EVERY 72 HOURS
     Route: 062
  3. FENTANYL TRANSDERMAL SYSTEM [Suspect]
     Active Substance: FENTANYL
     Dosage: 100 MCG/HR EVERY 72 HOURS
     Route: 062
     Dates: start: 20210119

REACTIONS (3)
  - Cold sweat [Unknown]
  - Tremor [Unknown]
  - Product adhesion issue [Unknown]
